FAERS Safety Report 9201217 (Version 2)
Quarter: 2014Q1

REPORT INFORMATION
  Report Type: Report from Study
  Country: CA (occurrence: CA)
  Receive Date: 20130401
  Receipt Date: 20140115
  Transmission Date: 20141002
  Serious: Yes (Hospitalization)
  Sender: FDA-Public Use
  Company Number: PHHY2013CA028458

PATIENT
  Age: 41 Year
  Sex: Female

DRUGS (1)
  1. SANDOSTATIN LAR [Suspect]
     Indication: CARCINOID TUMOUR OF THE SMALL BOWEL
     Dosage: 30 MG, EVERY 4 WEEKS
     Route: 030
     Dates: start: 20100913

REACTIONS (2)
  - Hepatic lesion [Unknown]
  - Alopecia [Unknown]
